FAERS Safety Report 7786353-5 (Version None)
Quarter: 2011Q3

REPORT INFORMATION
  Report Type: 
  Country: None (occurrence: None)
  Receive Date: 20110928
  Receipt Date: 20110928
  Transmission Date: 20111222
  Serious: No
  Sender: FDA-Public Use
  Company Number: None

PATIENT
  Age: 72 Year
  Sex: Female
  Weight: 83.0083 kg

DRUGS (1)
  1. WARFARIN SODIUM [Suspect]
     Indication: ATRIAL FIBRILLATION
     Dosage: 5 MG QD PO 2-3 WEEKS PRIOR
     Route: 048

REACTIONS (3)
  - URTICARIA [None]
  - RASH MACULO-PAPULAR [None]
  - HYPERSENSITIVITY [None]
